FAERS Safety Report 4778198-5 (Version None)
Quarter: 2005Q3

REPORT INFORMATION
  Report Type: 
  Country: None (occurrence: None)
  Receive Date: 20050926
  Receipt Date: 20011016
  Transmission Date: 20060218
  Serious: Yes (Other)
  Sender: FDA-Public Use
  Company Number: US-BRISTOL-MYERS SQUIBB COMPANY-11536398

PATIENT
  Age: 49 Year
  Sex: Male

DRUGS (4)
  1. STADOL [Suspect]
     Dates: start: 19970320, end: 19970801
  2. BUTALBITAL + CAFFEINE + ACETAMINOPHEN [Concomitant]
  3. CARISOPRODOL [Concomitant]
  4. HYDROCODONE TARTRATE+ACETAMINOPHEN [Concomitant]

REACTIONS (1)
  - DEPENDENCE [None]
